FAERS Safety Report 17727870 (Version 1)
Quarter: 2020Q2

REPORT INFORMATION
  Report Type: Spontaneous
  Country: US (occurrence: US)
  Receive Date: 20200430
  Receipt Date: 20200430
  Transmission Date: 20200714
  Serious: No
  Sender: FDA-Public Use
  Company Number: US-PFIZER INC-2020173234

PATIENT
  Age: 59 Year
  Sex: Female

DRUGS (3)
  1. ALPRAZOLAM. [Suspect]
     Active Substance: ALPRAZOLAM
     Indication: DEPRESSION
  2. ALPRAZOLAM. [Suspect]
     Active Substance: ALPRAZOLAM
     Indication: ANXIETY
     Dosage: UNK (1/2 TO 1 1MG TABLET BY MOUTH UP TO TWICE DAILY)
     Route: 048
  3. ALPRAZOLAM. [Suspect]
     Active Substance: ALPRAZOLAM
     Indication: POST-TRAUMATIC STRESS DISORDER

REACTIONS (6)
  - Drug hypersensitivity [Recovered/Resolved]
  - Eye disorder [Unknown]
  - Dysphagia [Unknown]
  - Drug ineffective [Unknown]
  - Oropharyngeal discomfort [Unknown]
  - Nervousness [Unknown]
